FAERS Safety Report 8059174-6 (Version None)
Quarter: 2012Q1

REPORT INFORMATION
  Report Type: 
  Country: None (occurrence: None)
  Receive Date: 20120120
  Receipt Date: 20120110
  Transmission Date: 20120608
  Serious: No
  Sender: FDA-Public Use
  Company Number: US-PFIZER INC-2012008131

PATIENT
  Age: 55 Year
  Sex: Female
  Weight: 86.2 kg

DRUGS (2)
  1. CIPROFLOXACIN [Suspect]
     Dosage: 500 MG, 2X/DAY
     Route: 048
     Dates: start: 20110118, end: 20110120
  2. FLAGYL [Suspect]
     Indication: COLITIS
     Dosage: 250 MG, 3X/DAY
     Route: 048
     Dates: start: 20110118, end: 20110120

REACTIONS (5)
  - SCAR [None]
  - URTICARIA [None]
  - VOMITING [None]
  - REACTION TO DRUG EXCIPIENTS [None]
  - NAUSEA [None]
